FAERS Safety Report 7282626-3 (Version None)
Quarter: 2011Q1

REPORT INFORMATION
  Report Type: 
  Country: None (occurrence: None)
  Receive Date: 20110209
  Receipt Date: 20110207
  Transmission Date: 20110831
  Serious: Yes (Hospitalization, Other)
  Sender: FDA-Public Use
  Company Number: US-JNJFOC-20100602915

PATIENT
  Age: 6 Year
  Sex: Female
  Weight: 24.49 kg

DRUGS (7)
  1. CHILDREN'S TYLENOL SUSPENSION [Suspect]
     Route: 048
  2. CHILDREN'S TYLENOL SUSPENSION [Suspect]
     Indication: PYREXIA
     Route: 065
  3. IBUPROFEN [Suspect]
     Indication: PYREXIA
     Route: 065
  4. CHILDREN'S TYLENOL SUSPENSION [Suspect]
     Indication: PYREXIA
     Dosage: 160-320MG, EVERY 4-6 HOURS A DAY, AS NEEDED
     Route: 048
  5. XOPENEX [Concomitant]
     Indication: ILL-DEFINED DISORDER
     Route: 065
  6. CHILDREN'S TYLENOL SUSPENSION [Suspect]
     Route: 065
  7. OTHER THERAPEUTIC PRODUCT [Concomitant]
     Indication: H1N1 INFLUENZA
     Route: 050

REACTIONS (8)
  - HALLUCINATION [None]
  - BACK PAIN [None]
  - PYREXIA [None]
  - PRODUCT QUALITY ISSUE [None]
  - PAIN [None]
  - DRUG INEFFECTIVE [None]
  - HEPATIC ENZYME INCREASED [None]
  - ABDOMINAL PAIN UPPER [None]
